FAERS Safety Report 25614598 (Version 1)
Quarter: 2025Q3

REPORT INFORMATION
  Report Type: Spontaneous
  Country: US (occurrence: US)
  Receive Date: 20250729
  Receipt Date: 20250729
  Transmission Date: 20251021
  Serious: No
  Sender: CSL BEHRING
  Company Number: US-BEH-2025213464

PATIENT
  Sex: Female

DRUGS (3)
  1. HIZENTRA [Suspect]
     Active Substance: HUMAN IMMUNOGLOBULIN G
     Indication: Hypogammaglobulinaemia
     Dosage: 22 G, QW
     Route: 058
     Dates: start: 202305
  2. EPINEPHRINE [Concomitant]
     Active Substance: EPINEPHRINE
  3. STELARA [Concomitant]
     Active Substance: USTEKINUMAB

REACTIONS (7)
  - Gastrointestinal disorder [Unknown]
  - Pain [Unknown]
  - Abdominal distension [Unknown]
  - Flatulence [Unknown]
  - Diarrhoea [Unknown]
  - Constipation [Unknown]
  - Discomfort [Unknown]
